FAERS Safety Report 5007972-5 (Version None)
Quarter: 2006Q2

REPORT INFORMATION
  Report Type: 
  Country: None (occurrence: None)
  Receive Date: 20060517
  Receipt Date: 20060510
  Transmission Date: 20061013
  Serious: Yes (Other)
  Sender: FDA-Public Use
  Company Number: 2006062610

PATIENT
  Age: 61 Year
  Sex: Male

DRUGS (1)
  1. ATARAX [Suspect]
     Indication: PREOPERATIVE CARE
     Dosage: 25 MG (25 MG, ONCE), INTRAMUSCULAR
     Route: 030

REACTIONS (4)
  - ANAPHYLACTOID SHOCK [None]
  - ASTHMA [None]
  - CYANOSIS [None]
  - ELECTROCARDIOGRAM ABNORMAL [None]
